FAERS Safety Report 9216585 (Version 1)
Quarter: 2013Q2

REPORT INFORMATION
  Report Type: Spontaneous
  Country: GB (occurrence: None)
  Receive Date: 20130401
  Receipt Date: 20130401
  Transmission Date: 20140414
  Serious: Yes (Other)
  Sender: FDA-Public Use
  Company Number: GB-DEXPHARM-20130136

PATIENT
  Sex: Male

DRUGS (1)
  1. DICLOFENAC [Suspect]

REACTIONS (6)
  - Haemorrhage [None]
  - Blood iron abnormal [None]
  - HIV infection [None]
  - Therapeutic response unexpected [None]
  - Bladder disorder [None]
  - Gastrooesophageal reflux disease [None]
